FAERS Safety Report 9415007 (Version 1)
Quarter: 2013Q3

REPORT INFORMATION
  Report Type: Spontaneous
  Country: AU (occurrence: AU)
  Receive Date: 20130723
  Receipt Date: 20130723
  Transmission Date: 20140515
  Serious: Yes (Other)
  Sender: FDA-Public Use
  Company Number: AU-JNJFOC-20130708600

PATIENT
  Age: 9 Decade
  Sex: Female

DRUGS (1)
  1. DUROGESIC [Suspect]
     Indication: OSTEOARTHRITIS
     Route: 062

REACTIONS (2)
  - Drug diversion [Recovered/Resolved]
  - Altered state of consciousness [Recovered/Resolved]
